FAERS Safety Report 4685461-5 (Version None)
Quarter: 2005Q2

REPORT INFORMATION
  Report Type: 
  Country: None (occurrence: None)
  Receive Date: 20050608
  Receipt Date: 20050527
  Transmission Date: 20051028
  Serious: Yes (Other)
  Sender: FDA-Public Use
  Company Number: US-AMGEN-US136143

PATIENT
  Sex: Female

DRUGS (7)
  1. ENBREL [Suspect]
     Indication: PSORIASIS
     Dates: start: 20030103
  2. ZOLOFT [Concomitant]
  3. WELLBUTRIN [Concomitant]
  4. NORVASC [Concomitant]
  5. DYAZIDE [Concomitant]
  6. CALCIUM GLUCONATE [Concomitant]
  7. PREMARIN [Concomitant]

REACTIONS (1)
  - COLITIS COLLAGENOUS [None]
